FAERS Safety Report 12421583 (Version 1)
Quarter: 2016Q2

REPORT INFORMATION
  Report Type: Spontaneous
  Country: US (occurrence: US)
  Receive Date: 20160531
  Receipt Date: 20160531
  Transmission Date: 20160815
  Serious: Yes (Other)
  Sender: FDA-Public Use
  Company Number: US-BRISTOL-MYERS SQUIBB COMPANY-BMS-2016-041714

PATIENT
  Sex: Male

DRUGS (2)
  1. ABILIFY [Suspect]
     Active Substance: ARIPIPRAZOLE
     Indication: SCHIZOPHRENIA
     Dosage: 25 MG, QD
     Route: 048
     Dates: start: 201305
  2. ABILIFY [Suspect]
     Active Substance: ARIPIPRAZOLE
     Dosage: 25 MG, BID
     Route: 048
     Dates: start: 20160518

REACTIONS (6)
  - Dizziness [Unknown]
  - Malaise [Unknown]
  - Nausea [Unknown]
  - Off label use [Unknown]
  - Psychotic disorder [Recovered/Resolved]
  - Treatment noncompliance [Recovering/Resolving]

NARRATIVE: CASE EVENT DATE: 2015
